FAERS Safety Report 5499875-7 (Version None)
Quarter: 2007Q4

REPORT INFORMATION
  Report Type: 
  Country: None (occurrence: None)
  Receive Date: 20071026
  Receipt Date: 20071014
  Transmission Date: 20080405
  Serious: Yes (Other)
  Sender: FDA-Public Use
  Company Number: US-PFIZER INC-2007087073

PATIENT
  Age: 54 Year
  Sex: Female

DRUGS (7)
  1. CHANTIX [Suspect]
     Indication: SMOKING CESSATION THERAPY
  2. PROZAC [Concomitant]
     Indication: DEPRESSION
  3. WELLBUTRIN [Concomitant]
     Indication: DEPRESSION
  4. SEROQUEL [Concomitant]
     Indication: DEPRESSION
  5. REMERON [Concomitant]
     Indication: DEPRESSION
  6. COGENTIN [Concomitant]
  7. CHOLESTEROL- AND TRIGLYCERIDE REDUCERS [Concomitant]

REACTIONS (10)
  - ABNORMAL BEHAVIOUR [None]
  - AGGRESSION [None]
  - ANGER [None]
  - BIPOLAR DISORDER [None]
  - DISTURBANCE IN SOCIAL BEHAVIOUR [None]
  - FEELING ABNORMAL [None]
  - IMPATIENCE [None]
  - TOOTH EXTRACTION [None]
  - WEIGHT DECREASED [None]
  - WEIGHT INCREASED [None]
